FAERS Safety Report 14469685 (Version 28)
Quarter: 2022Q4

REPORT INFORMATION
  Report Type: Spontaneous
  Country: GB (occurrence: GB)
  Receive Date: 20180131
  Receipt Date: 20221212
  Transmission Date: 20230113
  Serious: Yes (Other)
  Sender: FDA-Public Use
  Company Number: GB-002147023-PHHY2017GB192858

PATIENT
  Age: 44 Year
  Sex: Male

DRUGS (16)
  1. METHYLPHENIDATE [Suspect]
     Active Substance: METHYLPHENIDATE
     Indication: Product used for unknown indication
     Dosage: UNK (ABUSE)
     Route: 065
     Dates: start: 20170201, end: 20170201
  2. METHYLPHENIDATE [Suspect]
     Active Substance: METHYLPHENIDATE
     Dosage: UNK
     Route: 042
     Dates: start: 20170201, end: 20170501
  3. METHYLPHENIDATE [Suspect]
     Active Substance: METHYLPHENIDATE
     Dosage: UNK
     Route: 065
     Dates: start: 20170201, end: 20170501
  4. METHYLPHENIDATE [Suspect]
     Active Substance: METHYLPHENIDATE
     Dosage: UNK
     Route: 065
     Dates: start: 20170201, end: 20170201
  5. METHYLPHENIDATE [Suspect]
     Active Substance: METHYLPHENIDATE
     Dosage: UNK
     Route: 065
     Dates: start: 20170202, end: 20170501
  6. METHYLPHENIDATE [Suspect]
     Active Substance: METHYLPHENIDATE
     Dosage: UNK, QD (ABUSE)
     Route: 065
     Dates: start: 20170201, end: 20170202
  7. METHYLPHENIDATE [Suspect]
     Active Substance: METHYLPHENIDATE
     Dosage: UNK UNK, QD (ABUSE)
     Route: 065
     Dates: start: 20170201, end: 20170201
  8. PREGABALIN [Suspect]
     Active Substance: PREGABALIN
     Indication: Product used for unknown indication
     Dosage: UNK, ABUSE
     Route: 065
     Dates: start: 201702, end: 201705
  9. PREGABALIN [Suspect]
     Active Substance: PREGABALIN
     Dosage: UNK
     Route: 065
     Dates: start: 20170201, end: 20170501
  10. PREGABALIN [Suspect]
     Active Substance: PREGABALIN
     Dosage: UNK,
     Route: 065
     Dates: start: 20170201, end: 20170501
  11. PREGABALIN [Suspect]
     Active Substance: PREGABALIN
     Dosage: UNK,ABUSE
     Route: 065
     Dates: start: 20170201, end: 20170201
  12. PREGABALIN [Suspect]
     Active Substance: PREGABALIN
     Dosage: UNK
     Route: 065
     Dates: start: 201702, end: 201705
  13. PREGABALIN [Suspect]
     Active Substance: PREGABALIN
     Dosage: UNK
     Route: 065
     Dates: start: 20170201, end: 20170201
  14. PREGABALIN [Suspect]
     Active Substance: PREGABALIN
     Indication: Product used for unknown indication
     Dosage: UNK
     Route: 065
     Dates: start: 20170201, end: 20170501
  15. AMPHETAMINE [Concomitant]
     Active Substance: AMPHETAMINE
     Indication: Product used for unknown indication
     Dosage: UNK
     Route: 065
  16. COCAINE [Concomitant]
     Active Substance: COCAINE
     Indication: Product used for unknown indication
     Dosage: UNK
     Route: 065

REACTIONS (4)
  - Loss of consciousness [Recovered/Resolved]
  - Drug dependence [Recovered/Resolved]
  - Prescription drug used without a prescription [Recovered/Resolved]
  - Drug abuse [Recovered/Resolved]
